FAERS Safety Report 12723975 (Version 1)
Quarter: 2016Q3

REPORT INFORMATION
  Report Type: Spontaneous
  Country: FR (occurrence: FR)
  Receive Date: 20160908
  Receipt Date: 20160908
  Transmission Date: 20161109
  Serious: Yes (Hospitalization, Other)
  Sender: FDA-Public Use
  Company Number: FR-ASTRAZENECA-2016SE94327

PATIENT
  Age: 31669 Day
  Sex: Female

DRUGS (5)
  1. COAPROVEL [Suspect]
     Active Substance: HYDROCHLOROTHIAZIDE\IRBESARTAN
     Indication: HYPERTENSION
     Dosage: 300 MG /25 MG
     Route: 048
     Dates: start: 20160801, end: 20160804
  2. LERCAN [Concomitant]
     Active Substance: LERCANIDIPINE
  3. COVERAM [Concomitant]
     Active Substance: AMLODIPINE\PERINDOPRIL
  4. LEVOTHYROX [Concomitant]
     Active Substance: LEVOTHYROXINE
     Dosage: 175.0UG UNKNOWN
  5. HYTACAND [Suspect]
     Active Substance: CANDESARTAN CILEXETIL\HYDROCHLOROTHIAZIDE
     Indication: HYPERTENSION
     Dosage: 16 MG /12.5 MG
     Route: 048
     Dates: start: 20160708, end: 20160804

REACTIONS (3)
  - Hypotension [Recovered/Resolved]
  - Hyponatraemia [Recovered/Resolved]
  - Abdominal pain [Recovered/Resolved]

NARRATIVE: CASE EVENT DATE: 20160804
